FAERS Safety Report 4601650-X (Version None)
Quarter: 2005Q1

REPORT INFORMATION
  Report Type: 
  Country: None (occurrence: None)
  Receive Date: 20050308
  Receipt Date: 20050303
  Transmission Date: 20050727
  Serious: Yes (Hospitalization)
  Sender: FDA-Public Use
  Company Number: 2005003866

PATIENT
  Age: 61 Year
  Sex: Male
  Weight: 114 kg

DRUGS (2)
  1. QUILONUM RETARD [Suspect]
     Dosage: 450MG TWICE PER DAY
     Route: 048
  2. LEPONEX [Suspect]
     Dosage: 25MG PER DAY
     Route: 048

REACTIONS (6)
  - BLOOD GLUCOSE DECREASED [None]
  - BOWEL SOUNDS ABNORMAL [None]
  - CONVULSION [None]
  - MYALGIA [None]
  - MYOCLONUS [None]
  - SOMNOLENCE [None]
